FAERS Safety Report 18404840 (Version 1)
Quarter: 2020Q4

REPORT INFORMATION
  Report Type: Spontaneous
  Country: HU (occurrence: HU)
  Receive Date: 20201020
  Receipt Date: 20201020
  Transmission Date: 20210114
  Serious: Yes (Disabling)
  Sender: FDA-Public Use
  Company Number: NVSC2020HU275443

PATIENT
  Age: 68 Year
  Sex: Male

DRUGS (24)
  1. CLEXANE [Suspect]
     Active Substance: ENOXAPARIN SODIUM
     Indication: PRODUCT USED FOR UNKNOWN INDICATION
     Dosage: 0.4 ML
     Route: 065
     Dates: start: 202001, end: 20200129
  2. CLAFORAN [Suspect]
     Active Substance: CEFOTAXIME SODIUM
     Indication: PRODUCT USED FOR UNKNOWN INDICATION
     Dosage: 1 G, Q12H
     Route: 065
     Dates: start: 20200117, end: 20200121
  3. PROPOFOL. [Suspect]
     Active Substance: PROPOFOL
     Indication: PRODUCT USED FOR UNKNOWN INDICATION
     Dosage: 250 MG, ONCE/SINGLE
     Route: 065
     Dates: start: 20200117, end: 20200117
  4. FENTANYL. [Suspect]
     Active Substance: FENTANYL
     Dosage: 2 ML
     Route: 065
     Dates: start: 20200119, end: 20200119
  5. BUPIVACAINE. [Suspect]
     Active Substance: BUPIVACAINE
     Indication: EPIDURAL ANAESTHESIA
     Dosage: UNK
     Route: 065
     Dates: start: 20200117, end: 20200117
  6. CONTROLOC [Suspect]
     Active Substance: PANTOPRAZOLE SODIUM
     Indication: PRODUCT USED FOR UNKNOWN INDICATION
     Dosage: 1 DF, Q12H
     Route: 065
     Dates: start: 20200117, end: 20200129
  7. ALGOPYRIN (AMINOPHENAZONE) [Suspect]
     Active Substance: AMINOPHENAZONE
     Dosage: UNK
     Route: 065
     Dates: start: 20200120, end: 20200120
  8. SUFENTANIL [Suspect]
     Active Substance: SUFENTANIL
     Indication: PRODUCT USED FOR UNKNOWN INDICATION
     Dosage: 40 UG, ONCE/SINGLE
     Route: 065
     Dates: start: 20200117, end: 20200117
  9. KLION [METRONIDAZOLE] [Suspect]
     Active Substance: METRONIDAZOLE
     Indication: PRODUCT USED FOR UNKNOWN INDICATION
     Dosage: 500 MG, ONCE/SINGLE
     Route: 065
     Dates: start: 20200117, end: 20200117
  10. CONTROLOC [Suspect]
     Active Substance: PANTOPRAZOLE SODIUM
     Dosage: 1 DF, Q12H
     Route: 065
     Dates: start: 20200128, end: 20200129
  11. NO-SPA [Suspect]
     Active Substance: DROTAVERINE HYDROCHLORIDE
     Indication: PRODUCT USED FOR UNKNOWN INDICATION
     Dosage: UNK
     Route: 065
     Dates: start: 20200120, end: 20200120
  12. ESMERON [Suspect]
     Active Substance: ROCURONIUM BROMIDE
     Indication: PRODUCT USED FOR UNKNOWN INDICATION
     Dosage: UNK
     Route: 065
     Dates: start: 20200117, end: 20200117
  13. CLAFORAN [Suspect]
     Active Substance: CEFOTAXIME SODIUM
     Dosage: 1 G, ONCE/SINGLE
     Route: 065
     Dates: start: 20200117, end: 20200117
  14. ALGOPYRIN (AMINOPHENAZONE) [Suspect]
     Active Substance: AMINOPHENAZONE
     Indication: PRODUCT USED FOR UNKNOWN INDICATION
     Dosage: 2 G, ONCE/SINGLE
     Route: 065
     Dates: start: 20200117, end: 20200117
  15. BRIDION [Suspect]
     Active Substance: SUGAMMADEX
     Indication: PRODUCT USED FOR UNKNOWN INDICATION
     Dosage: 50 MG, ONCE/SINGLE
     Route: 065
     Dates: start: 20200117, end: 20200117
  16. XANAX [Suspect]
     Active Substance: ALPRAZOLAM
     Indication: PREMEDICATION
     Dosage: 0.25 MG, ONCE/SINGLE
     Route: 065
     Dates: start: 20200117, end: 20200117
  17. SUPRAX [Suspect]
     Active Substance: CEFIXIME
     Indication: PRODUCT USED FOR UNKNOWN INDICATION
     Dosage: UNK
     Route: 065
     Dates: start: 20200122, end: 20200127
  18. PARACETAMOL [Suspect]
     Active Substance: ACETAMINOPHEN
     Indication: PREMEDICATION
     Dosage: 1 G, ONCE/SINGLE
     Route: 065
     Dates: start: 20200117, end: 20200117
  19. KLION [METRONIDAZOLE] [Suspect]
     Active Substance: METRONIDAZOLE
     Dosage: UNK
     Route: 065
     Dates: start: 20200117, end: 20200127
  20. ONDANSETRON [Suspect]
     Active Substance: ONDANSETRON
     Indication: PRODUCT USED FOR UNKNOWN INDICATION
     Dosage: 4 MG, ONCE/SINGLE
     Route: 065
     Dates: start: 20200117, end: 20200117
  21. FENTANYL. [Suspect]
     Active Substance: FENTANYL
     Indication: EPIDURAL ANAESTHESIA
     Dosage: 2 ML
     Route: 065
     Dates: start: 20200117, end: 20200117
  22. TRAMADOL. [Suspect]
     Active Substance: TRAMADOL
     Indication: PRODUCT USED FOR UNKNOWN INDICATION
     Dosage: UNK
     Route: 065
     Dates: start: 20200120, end: 20200120
  23. LIDOCAINE. [Suspect]
     Active Substance: LIDOCAINE
     Indication: EPIDURAL ANAESTHESIA
     Dosage: UNK
     Route: 065
     Dates: start: 20200117, end: 20200117
  24. ADRENALINE [Suspect]
     Active Substance: EPINEPHRINE
     Indication: EPIDURAL ANAESTHESIA
     Dosage: UNK
     Route: 065
     Dates: start: 20200117, end: 20200117

REACTIONS (1)
  - Deafness neurosensory [Not Recovered/Not Resolved]

NARRATIVE: CASE EVENT DATE: 20200124
